FAERS Safety Report 21034787 (Version 2)
Quarter: 2022Q4

REPORT INFORMATION
  Report Type: Spontaneous
  Country: US (occurrence: US)
  Receive Date: 20220701
  Receipt Date: 20221130
  Transmission Date: 20230113
  Serious: No
  Sender: FDA-Public Use
  Company Number: US-PFIZER INC-PV202200008969

PATIENT
  Age: 65 Year
  Sex: Male

DRUGS (2)
  1. EUCRISA [Suspect]
     Active Substance: CRISABOROLE
     Indication: Skin fissures
     Dosage: UNK, DAILY (APPLY TOPICALLY DAILY TO HANDS AS DIRECTED BY PHYSICIAN)
     Route: 061
  2. EUCRISA [Suspect]
     Active Substance: CRISABOROLE
     Indication: Haemorrhage

REACTIONS (4)
  - Skin atrophy [Unknown]
  - Dry skin [Unknown]
  - Off label use [Unknown]
  - Off label use [Unknown]
